FAERS Safety Report 21241396 (Version 2)
Quarter: 2023Q1

REPORT INFORMATION
  Report Type: Other
  Country: CA (occurrence: CA)
  Receive Date: 20220823
  Receipt Date: 20230216
  Transmission Date: 20230418
  Serious: Yes (Other)
  Sender: FDA-Public Use
  Company Number: CA-TOLMAR, INC.-22CA036127

PATIENT
  Sex: Male

DRUGS (3)
  1. ELIGARD [Suspect]
     Active Substance: LEUPROLIDE ACETATE
     Indication: Prostate cancer
     Dosage: 45 MILLIGRAM, Q 6 MONTH
     Route: 058
     Dates: start: 20220222
  2. ELIGARD [Suspect]
     Active Substance: LEUPROLIDE ACETATE
     Dosage: 45 MILLIGRAM, Q 6 MONTH
     Route: 058
     Dates: start: 20220810
  3. ELIGARD [Suspect]
     Active Substance: LEUPROLIDE ACETATE
     Dosage: 45 MILLIGRAM, Q 6 MONTH
     Route: 058
     Dates: start: 20230126

REACTIONS (11)
  - Loss of consciousness [Unknown]
  - Flank pain [Unknown]
  - Paraesthesia [Unknown]
  - Axillary mass [Unknown]
  - Hypoaesthesia [Unknown]
  - Oedema peripheral [Unknown]
  - Burning sensation [Unknown]
  - Pain in extremity [Unknown]
  - Hot flush [Unknown]
  - Back pain [Unknown]
  - Prostatic specific antigen increased [Unknown]
